FAERS Safety Report 12143045 (Version 1)
Quarter: 2016Q1

REPORT INFORMATION
  Report Type: Spontaneous
  Country: US (occurrence: US)
  Receive Date: 20160303
  Receipt Date: 20160303
  Transmission Date: 20160526
  Serious: Yes (Other)
  Sender: FDA-Public Use
  Company Number: US-CELGENEUS-USA-2015117103

PATIENT
  Age: 79 Year
  Sex: Female
  Weight: 65.83 kg

DRUGS (9)
  1. ATENOLOL. [Concomitant]
     Active Substance: ATENOLOL
     Indication: PRODUCT USED FOR UNKNOWN INDICATION
  2. PROCRIT [Concomitant]
     Active Substance: ERYTHROPOIETIN
     Route: 050
     Dates: start: 20151116
  3. PROCRIT [Concomitant]
     Active Substance: ERYTHROPOIETIN
     Route: 050
     Dates: start: 20151214
  4. REVLIMID [Suspect]
     Active Substance: LENALIDOMIDE
     Route: 048
     Dates: start: 20151207, end: 20160204
  5. PROCRIT [Concomitant]
     Active Substance: ERYTHROPOIETIN
     Route: 050
     Dates: start: 20151029
  6. PROCRIT [Concomitant]
     Active Substance: ERYTHROPOIETIN
     Route: 050
     Dates: start: 20160204
  7. REVLIMID [Suspect]
     Active Substance: LENALIDOMIDE
     Indication: MYELODYSPLASTIC SYNDROME
     Route: 048
     Dates: start: 201511
  8. PROCRIT [Concomitant]
     Active Substance: ERYTHROPOIETIN
     Route: 050
     Dates: start: 20160105
  9. PROCRIT [Concomitant]
     Active Substance: ERYTHROPOIETIN
     Indication: THROMBOCYTOPENIA
     Route: 050
     Dates: start: 20151008

REACTIONS (1)
  - Thrombocytopenia [Unknown]

NARRATIVE: CASE EVENT DATE: 20151116
